FAERS Safety Report 11798221 (Version 1)
Quarter: 2015Q4

REPORT INFORMATION
  Report Type: Spontaneous
  Country: DE (occurrence: DE)
  Receive Date: 20151203
  Receipt Date: 20151203
  Transmission Date: 20160305
  Serious: Yes (Other)
  Sender: FDA-Public Use
  Company Number: DE-ELI_LILLY_AND_COMPANY-DE201511009704

PATIENT
  Age: 60 Year

DRUGS (3)
  1. GEMCITABINE HYDROCHLORIDE. [Suspect]
     Active Substance: GEMCITABINE HYDROCHLORIDE
     Indication: BILIARY CANCER METASTATIC
     Dosage: 1000 MG/M2, CYCLICAL
     Route: 065
  2. CISPLATINA [Suspect]
     Active Substance: CISPLATIN
     Indication: BILIARY CANCER METASTATIC
     Dosage: 25 MG/M2, CYCLICAL
     Route: 065
  3. AFATINIB [Suspect]
     Active Substance: AFATINIB
     Indication: BILIARY CANCER METASTATIC
     Dosage: 30 MG, QD
     Route: 065

REACTIONS (3)
  - Hypokalaemia [Unknown]
  - Mucosal inflammation [Unknown]
  - Thrombocytopenia [Unknown]
